FAERS Safety Report 17563538 (Version 1)
Quarter: 2020Q1

REPORT INFORMATION
  Report Type: Spontaneous
  Country: US (occurrence: US)
  Receive Date: 20200319
  Receipt Date: 20200319
  Transmission Date: 20200409
  Serious: Yes (Hospitalization)
  Sender: FDA-Public Use
  Company Number: US-VIFOR (INTERNATIONAL) INC.-VIT-2016-05947

PATIENT
  Age: 72 Year
  Sex: Female

DRUGS (27)
  1. VELTASSA [Suspect]
     Active Substance: PATIROMER
     Route: 048
     Dates: start: 20170406
  2. RENVELA [Concomitant]
     Active Substance: SEVELAMER CARBONATE
  3. AMIODARONE [Concomitant]
     Active Substance: AMIODARONE
     Dates: start: 20191025
  4. FLUTICASONE. [Concomitant]
     Active Substance: FLUTICASONE
     Dates: start: 20191230
  5. FENOFIBRATE. [Concomitant]
     Active Substance: FENOFIBRATE
  6. MAG OXIDE [Concomitant]
     Active Substance: MAGNESIUM OXIDE
  7. ESCITALOPRAM [Concomitant]
     Active Substance: ESCITALOPRAM OXALATE
     Dates: start: 20191107
  8. LEVOTHYROXIN [Concomitant]
     Active Substance: LEVOTHYROXINE
     Dates: start: 20191112
  9. MIDODRINE [Concomitant]
     Active Substance: MIDODRINE
     Dates: start: 20200218
  10. WARFARIN [Concomitant]
     Active Substance: WARFARIN
  11. FIASP [Concomitant]
     Active Substance: INSULIN ASPART
     Dates: start: 20191210
  12. DONEPEZIL. [Concomitant]
     Active Substance: DONEPEZIL
  13. VELTASSA [Suspect]
     Active Substance: PATIROMER
     Indication: HYPERKALAEMIA
     Route: 048
  14. DIVALPROEX [Concomitant]
     Active Substance: DIVALPROEX SODIUM
     Dates: start: 20191115
  15. NAMZARIC [Concomitant]
     Active Substance: DONEPEZIL HYDROCHLORIDE\MEMANTINE HYDROCHLORIDE
     Dosage: 28-10MG
     Dates: start: 20191024
  16. ALPRAZOLAM. [Concomitant]
     Active Substance: ALPRAZOLAM
     Dates: start: 20191001
  17. DIVALPROEX [Concomitant]
     Active Substance: DIVALPROEX SODIUM
     Dates: start: 20191112
  18. MIDODRINE [Concomitant]
     Active Substance: MIDODRINE
     Dates: start: 20200124
  19. VITAMIN D [Concomitant]
     Active Substance: VITAMIN D NOS
     Dates: start: 20200114
  20. SYMBICORT [Concomitant]
     Active Substance: BUDESONIDE\FORMOTEROL FUMARATE DIHYDRATE
     Dosage: 80-4.5
     Dates: start: 20191231
  21. ELIQUIS [Concomitant]
     Active Substance: APIXABAN
     Dates: start: 20191028
  22. PANTOPRAZOLE [Concomitant]
     Active Substance: PANTOPRAZOLE
     Dates: start: 20190927
  23. ZOLPIDEM [Concomitant]
     Active Substance: ZOLPIDEM TARTRATE
     Dates: start: 20200304
  24. OMEGA-3 ACIDS [Concomitant]
     Active Substance: OMEGA-3 FATTY ACIDS
  25. AMIODARONE [Concomitant]
     Active Substance: AMIODARONE
     Dates: start: 20191028
  26. CALC ACETATE [Concomitant]
     Active Substance: CALCIUM ACETATE
     Dates: start: 20200218
  27. ESCITALOPRAM [Concomitant]
     Active Substance: ESCITALOPRAM OXALATE
     Dates: start: 20200202

REACTIONS (1)
  - Graft complication [Not Recovered/Not Resolved]

NARRATIVE: CASE EVENT DATE: 2016
